FAERS Safety Report 19896357 (Version 2)
Quarter: 2021Q4

REPORT INFORMATION
  Report Type: Spontaneous
  Country: US (occurrence: US)
  Receive Date: 20210929
  Receipt Date: 20211115
  Transmission Date: 20220303
  Serious: No
  Sender: FDA-Public Use
  Company Number: US-PFIZER INC-2020405630

PATIENT
  Age: 81 Year
  Sex: Female
  Weight: 52.16 kg

DRUGS (2)
  1. NIVESTYM [Suspect]
     Active Substance: FILGRASTIM-AAFI
     Indication: Myelodysplastic syndrome
     Dosage: 300 UG, 2X/WEEK
     Route: 058
  2. NIVESTYM [Suspect]
     Active Substance: FILGRASTIM-AAFI
     Dosage: 300 UG (0.5ML, INJECTION)
     Route: 058
     Dates: start: 20210831

REACTIONS (5)
  - Injection site pain [Recovered/Resolved]
  - Device leakage [Unknown]
  - Device mechanical issue [Unknown]
  - Incorrect dose administered [Unknown]
  - Off label use [Unknown]

NARRATIVE: CASE EVENT DATE: 20210831
